FAERS Safety Report 7704347-2 (Version None)
Quarter: 2011Q3

REPORT INFORMATION
  Report Type: 
  Country: None (occurrence: None)
  Receive Date: 20110823
  Receipt Date: 20110818
  Transmission Date: 20111222
  Serious: Yes (Other)
  Sender: FDA-Public Use
  Company Number: PHHY2011FR74349

PATIENT
  Age: 63 Year
  Sex: Female

DRUGS (6)
  1. MODOPAR 125 [Suspect]
     Indication: PARKINSON'S DISEASE
     Dosage: 100/25 MG
     Dates: start: 20100923
  2. STALEVO 100 [Suspect]
     Indication: PARKINSON'S DISEASE
     Dosage: 6 DF, DAILY
     Dates: end: 20100923
  3. AZILECT [Suspect]
     Dosage: 1 ML, QD
     Dates: start: 20110208
  4. DOMPERIDONE [Concomitant]
     Dosage: UNK UKN, UNK
  5. REQUIP [Suspect]
     Indication: PARKINSON'S DISEASE
     Dosage: 5 MG, QD
  6. ATORVASTATIN CALCIUM [Concomitant]
     Dosage: UNK UKN, UNK

REACTIONS (1)
  - METASTATIC MALIGNANT MELANOMA [None]
